FAERS Safety Report 11481577 (Version 5)
Quarter: 2019Q2

REPORT INFORMATION
  Report Type: Spontaneous
  Country: US (occurrence: US)
  Receive Date: 20150909
  Receipt Date: 20190523
  Transmission Date: 20190711
  Serious: Yes (Other)
  Sender: FDA-Public Use
  Company Number: US-JAZZ-2014-US-012527

PATIENT
  Sex: Female

DRUGS (5)
  1. XYREM [Suspect]
     Active Substance: SODIUM OXYBATE
     Dosage: 4.5 G, BID
     Route: 048
     Dates: start: 201408, end: 201408
  2. VYVANSE [Concomitant]
     Active Substance: LISDEXAMFETAMINE DIMESYLATE
     Indication: PRODUCT USED FOR UNKNOWN INDICATION
     Dosage: UNK
  3. XYREM [Suspect]
     Active Substance: SODIUM OXYBATE
     Indication: NARCOLEPSY
     Dosage: 2.25 G, BID
     Route: 048
     Dates: start: 201408, end: 201408
  4. XYREM [Suspect]
     Active Substance: SODIUM OXYBATE
     Dosage: 3.75 G, BID
     Route: 048
  5. XYREM [Suspect]
     Active Substance: SODIUM OXYBATE
     Dosage: DOSE ADJUSTMENTS
     Route: 048
     Dates: start: 201408, end: 201408

REACTIONS (12)
  - Crying [Unknown]
  - Dehydration [Not Recovered/Not Resolved]
  - Anxiety [Recovering/Resolving]
  - Nausea [Unknown]
  - Depression [Unknown]
  - Muscle twitching [Unknown]
  - Seasonal allergy [Not Recovered/Not Resolved]
  - Stress [Not Recovered/Not Resolved]
  - Feeling hot [Unknown]
  - Weight increased [Unknown]
  - Somnolence [Unknown]
  - Dyskinesia [Unknown]
